FAERS Safety Report 19578376 (Version 2)
Quarter: 2021Q3

REPORT INFORMATION
  Report Type: Spontaneous
  Country: US (occurrence: US)
  Receive Date: 20210719
  Receipt Date: 20210728
  Transmission Date: 20211014
  Serious: No
  Sender: FDA-Public Use
  Company Number: US-PFIZER INC-2020430737

PATIENT
  Age: 70 Year
  Sex: Female

DRUGS (1)
  1. LYRICA [Suspect]
     Active Substance: PREGABALIN
     Indication: RESTLESS LEGS SYNDROME
     Dosage: 300 MG, 1X/DAY (1 CAPSULE IN THE EVENING 1 TO 3 HOURS BEFORE BEDTIME ONCE A DAY)
     Route: 048

REACTIONS (6)
  - Off label use [Unknown]
  - Intentional product use issue [Unknown]
  - Cognitive disorder [Unknown]
  - Withdrawal syndrome [Unknown]
  - Pain [Unknown]
  - Pain in extremity [Unknown]
